FAERS Safety Report 8078166-4 (Version None)
Quarter: 2012Q1

REPORT INFORMATION
  Report Type: 
  Country: None (occurrence: None)
  Receive Date: 20120127
  Receipt Date: 20110707
  Transmission Date: 20120608
  Serious: No
  Sender: FDA-Public Use
  Company Number: US-BAUSCH-2011BL004577

PATIENT
  Age: 68 Year
  Sex: Female

DRUGS (3)
  1. ZYLET [Suspect]
     Indication: EYE DISORDER
     Route: 047
     Dates: start: 20110702, end: 20110702
  2. PATADAY [Concomitant]
     Indication: EYE ALLERGY
     Route: 047
  3. ZYLET [Suspect]
     Indication: ADVERSE DRUG REACTION
     Route: 047
     Dates: start: 20110702, end: 20110702

REACTIONS (2)
  - RASH MACULAR [None]
  - RASH PRURITIC [None]
